FAERS Safety Report 18139335 (Version 1)
Quarter: 2020Q3

REPORT INFORMATION
  Report Type: Spontaneous
  Country: CA (occurrence: CA)
  Receive Date: 20200812
  Receipt Date: 20200812
  Transmission Date: 20201103
  Serious: Yes (Hospitalization, Other)
  Sender: FDA-Public Use
  Company Number: CA-ALLERGAN-2029612US

PATIENT
  Sex: Female

DRUGS (33)
  1. PALMIDROL [Suspect]
     Active Substance: PALMIDROL
     Indication: COMPLEX REGIONAL PAIN SYNDROME
  2. PENTOXIFYLLINE. [Suspect]
     Active Substance: PENTOXIFYLLINE
     Indication: COMPLEX REGIONAL PAIN SYNDROME
  3. CIMETIDINE [Suspect]
     Active Substance: CIMETIDINE
     Indication: COMPLEX REGIONAL PAIN SYNDROME
  4. MAGNESIUM [Suspect]
     Active Substance: MAGNESIUM
     Indication: COMPLEX REGIONAL PAIN SYNDROME
  5. MONTELUKAST [Suspect]
     Active Substance: MONTELUKAST SODIUM
     Indication: COMPLEX REGIONAL PAIN SYNDROME
  6. NALTREXONE HYDROCHLORIDE. [Suspect]
     Active Substance: NALTREXONE HYDROCHLORIDE
     Indication: COMPLEX REGIONAL PAIN SYNDROME
     Dosage: 4.5 MG, QD
  7. EZETIMIBE. [Concomitant]
     Active Substance: EZETIMIBE
     Indication: HYPERLIPIDAEMIA
  8. TRAZODONE [Concomitant]
     Active Substance: TRAZODONE HYDROCHLORIDE
     Indication: INSOMNIA
  9. CAPSAICIN. [Suspect]
     Active Substance: CAPSAICIN
     Indication: COMPLEX REGIONAL PAIN SYNDROME
  10. CLONIDINE. [Suspect]
     Active Substance: CLONIDINE
     Indication: COMPLEX REGIONAL PAIN SYNDROME
  11. LIDOCAINE. [Suspect]
     Active Substance: LIDOCAINE
     Indication: COMPLEX REGIONAL PAIN SYNDROME
  12. VITAMIN B2 [Suspect]
     Active Substance: RIBOFLAVIN
     Indication: COMPLEX REGIONAL PAIN SYNDROME
  13. HYDROXYCHLOROQUINE SULFATE. [Suspect]
     Active Substance: HYDROXYCHLOROQUINE SULFATE
     Indication: COMPLEX REGIONAL PAIN SYNDROME
  14. APREMILAST [Suspect]
     Active Substance: APREMILAST
     Indication: COMPLEX REGIONAL PAIN SYNDROME
  15. BUMETANIDE. [Suspect]
     Active Substance: BUMETANIDE
     Indication: COMPLEX REGIONAL PAIN SYNDROME
  16. DILTIAZEM. [Suspect]
     Active Substance: DILTIAZEM
     Indication: COMPLEX REGIONAL PAIN SYNDROME
  17. N?ACETYLCYSTEINE [Suspect]
     Active Substance: ACETYLCYSTEINE
     Indication: COMPLEX REGIONAL PAIN SYNDROME
  18. VITAMIN C [Suspect]
     Active Substance: ASCORBIC ACID
     Indication: COMPLEX REGIONAL PAIN SYNDROME
  19. MEMANTINE HCL ? BP [Suspect]
     Active Substance: MEMANTINE
     Indication: COMPLEX REGIONAL PAIN SYNDROME
     Route: 065
  20. AMITRIPTYLINE [Suspect]
     Active Substance: AMITRIPTYLINE
     Indication: COMPLEX REGIONAL PAIN SYNDROME
  21. LITHIUM CARBONATE. [Suspect]
     Active Substance: LITHIUM CARBONATE
     Indication: COMPLEX REGIONAL PAIN SYNDROME
  22. METPROLOL [Suspect]
     Active Substance: METOPROLOL
     Indication: COMPLEX REGIONAL PAIN SYNDROME
  23. ANAKINRA [Suspect]
     Active Substance: ANAKINRA
     Indication: COMPLEX REGIONAL PAIN SYNDROME
  24. IBUDILAST [Suspect]
     Active Substance: IBUDILAST
     Indication: COMPLEX REGIONAL PAIN SYNDROME
  25. PREDNISONE. [Suspect]
     Active Substance: PREDNISONE
     Indication: COMPLEX REGIONAL PAIN SYNDROME
     Dosage: 5 MG, QD
  26. PREDNISONE. [Suspect]
     Active Substance: PREDNISONE
     Dosage: 95 MG, QD
  27. CALCITONIN [Concomitant]
     Active Substance: CALCITONIN
     Indication: COMPLEX REGIONAL PAIN SYNDROME
  28. AMLODIPINE BESILATE [Suspect]
     Active Substance: AMLODIPINE BESYLATE
     Indication: COMPLEX REGIONAL PAIN SYNDROME
  29. ETANERCEPT [Suspect]
     Active Substance: ETANERCEPT
     Indication: COMPLEX REGIONAL PAIN SYNDROME
  30. KETAMINE [Suspect]
     Active Substance: KETAMINE
     Indication: COMPLEX REGIONAL PAIN SYNDROME
  31. MYCOPHENOLATE MOFETIL. [Suspect]
     Active Substance: MYCOPHENOLATE MOFETIL
     Indication: COMPLEX REGIONAL PAIN SYNDROME
  32. SPIRONOLACTONE. [Suspect]
     Active Substance: SPIRONOLACTONE
     Indication: COMPLEX REGIONAL PAIN SYNDROME
  33. PREDNISONE. [Suspect]
     Active Substance: PREDNISONE
     Dosage: 85 MG, QD

REACTIONS (22)
  - Poor quality sleep [Recovered/Resolved]
  - Purpura [Recovered/Resolved]
  - Inhibitory drug interaction [Recovered/Resolved]
  - Glucose tolerance impaired [Recovered/Resolved]
  - Herpes zoster [Recovered/Resolved]
  - Impaired work ability [Recovered/Resolved]
  - Infection susceptibility increased [Recovered/Resolved]
  - Oral herpes [Recovered/Resolved]
  - Cataract [Recovered/Resolved]
  - Contusion [Recovered/Resolved]
  - Impaired quality of life [Recovered/Resolved]
  - Drug ineffective [Unknown]
  - Fatigue [Recovered/Resolved]
  - Hyperlipidaemia [Recovered/Resolved]
  - Skin disorder [Recovered/Resolved]
  - Body tinea [Recovered/Resolved]
  - Cellulitis [Recovered/Resolved]
  - Insomnia [Recovered/Resolved]
  - Weight increased [Recovered/Resolved]
  - Bone density decreased [Recovered/Resolved]
  - Product use in unapproved indication [Unknown]
  - Hypertension [Recovered/Resolved]
